FAERS Safety Report 7688966-8 (Version None)
Quarter: 2011Q3

REPORT INFORMATION
  Report Type: 
  Country: None (occurrence: None)
  Receive Date: 20110817
  Receipt Date: 20110812
  Transmission Date: 20111222
  Serious: Yes (Life-Threatening, Hospitalization, Other)
  Sender: FDA-Public Use
  Company Number: PHHY2011US50020

PATIENT
  Sex: Female

DRUGS (23)
  1. ADVAIR DISKUS 100/50 [Concomitant]
     Dosage: 250/50 1 PUFF TWICE DAILY
  2. AMITRIPTYLINE HCL [Concomitant]
     Dosage: 150 AT BEDTIME
  3. BENEFIBER [Concomitant]
     Dosage: 2 TSP DAILY
  4. COLACE [Concomitant]
     Dosage: 100 MG AT BED TIME
  5. MUCINEX DM [Concomitant]
     Dosage: UNK UKN, UNK
  6. PROMETHAZINE [Concomitant]
     Dosage: UNK UKN, UNK
  7. PHENERGAN HCL [Concomitant]
     Dosage: AS NEEDED
  8. MULTI-VITAMIN [Concomitant]
     Dosage: DAILY
  9. GLEEVEC [Suspect]
     Indication: CHRONIC MYELOID LEUKAEMIA
     Dosage: 300 MG, DAILY
     Route: 048
     Dates: start: 20110517
  10. DIAZEPAM [Concomitant]
     Dosage: 5 MG, EVERY 8 HRS
  11. NORVASC [Concomitant]
     Dosage: 5 MG, DAILY
  12. PLAVIX [Concomitant]
     Dosage: 75 MG, DAILY
  13. GLEEVEC [Suspect]
     Dosage: 100 MG, TID
     Route: 048
  14. SIMAVASTATIN [Concomitant]
     Dosage: 40 MG, DAILY
  15. TESSALON [Concomitant]
     Dosage: 100 3 TIMES DAILY
  16. PREVACID [Concomitant]
     Dosage: 15 MG, DAILY
  17. HYDROXYUREA [Concomitant]
  18. MIRALAX [Concomitant]
     Dosage: 17 G, DAILY
  19. BENADRYL [Concomitant]
  20. ALBUTEROL SULFATE AUTOHALER [Concomitant]
     Dosage: AS NEEDED
  21. ASPIRIN [Concomitant]
     Dosage: 81 MG, DAILY
  22. VALIUM [Concomitant]
     Indication: ANXIETY
     Dosage: 5 MG, EVERY 8 HRS AS NEEDED
  23. ARICEPT [Concomitant]
     Dosage: 10 MG, DAILY

REACTIONS (14)
  - APHASIA [None]
  - ASTHENIA [None]
  - EMBOLIC STROKE [None]
  - HYPERTENSION [None]
  - VIITH NERVE PARALYSIS [None]
  - FALL [None]
  - MICROANGIOPATHY [None]
  - SENILE DEMENTIA [None]
  - EYE OEDEMA [None]
  - CARDIAC FAILURE CONGESTIVE [None]
  - DYSLIPIDAEMIA [None]
  - LACUNAR INFARCTION [None]
  - RASH [None]
  - SPEECH DISORDER [None]
